FAERS Safety Report 9914241 (Version 2)
Quarter: 2014Q2

REPORT INFORMATION
  Report Type: Spontaneous
  Country: US (occurrence: None)
  Receive Date: 20140218
  Receipt Date: 20140418
  Transmission Date: 20141212
  Serious: Yes (Hospitalization, Other)
  Sender: FDA-Public Use
  Company Number: 2014-US-001594

PATIENT
  Age: 89 Year
  Sex: Male
  Weight: 95.2 kg

DRUGS (8)
  1. XYREM [Suspect]
     Indication: NARCOLEPSY
     Route: 048
     Dates: start: 200510, end: 2005
  2. ZOLOFT (SERTRALINE HYDROCHLORIDE) [Concomitant]
  3. AMLODIPINE (AMLODIPINE BESILATE) [Concomitant]
  4. RITALIN [Concomitant]
  5. CRESTOR (ROSUVASTATIN CALCIUM) [Concomitant]
  6. BUSPIRONE (BUSPIRONE HYDROCHLORIDE) [Concomitant]
  7. TRIAMTERENE/HCTZ (HYDROCLOROTHIAZIDE, TRIAMTERENE) [Concomitant]
  8. METOPROLOL (METOPROLOL TARTRATE) [Concomitant]

REACTIONS (11)
  - Cardiac failure congestive [None]
  - Pneumonia [None]
  - Muscle strain [None]
  - Back pain [None]
  - Fall [None]
  - Spinal fusion surgery [None]
  - Asthenia [None]
  - Back disorder [None]
  - Diarrhoea [None]
  - Tremor [None]
  - Tremor [None]
